FAERS Safety Report 5144877-3 (Version None)
Quarter: 2006Q4

REPORT INFORMATION
  Report Type: 
  Country: None (occurrence: None)
  Receive Date: 20061107
  Receipt Date: 20061012
  Transmission Date: 20070319
  Serious: Yes (Hospitalization)
  Sender: FDA-Public Use
  Company Number: US-AMGEN-STX196894

PATIENT
  Sex: Male

DRUGS (1)
  1. ENBREL [Suspect]
     Indication: RHEUMATOID ARTHRITIS
     Route: 058
     Dates: start: 20030111, end: 20060501

REACTIONS (4)
  - CATHETERISATION CARDIAC [None]
  - HEART VALVE REPLACEMENT [None]
  - LOWER GASTROINTESTINAL HAEMORRHAGE [None]
  - VASCULAR BYPASS GRAFT [None]
